FAERS Safety Report 8165278-X (Version None)
Quarter: 2012Q1

REPORT INFORMATION
  Report Type: 
  Country: None (occurrence: None)
  Receive Date: 20120222
  Receipt Date: 20120222
  Transmission Date: 20120608
  Serious: Yes (Hospitalization)
  Sender: FDA-Public Use
  Company Number: None

PATIENT
  Sex: Male
  Weight: 81.6475 kg

DRUGS (2)
  1. CLOZAPINE [Suspect]
     Indication: SCHIZOPHRENIA, PARANOID TYPE
     Dosage: 12.5 MG TWICE DAILY ORAL : 25 MG TWICE DAILY ORAL
     Route: 048
     Dates: start: 20111104, end: 20111105
  2. CLOZAPINE [Suspect]
     Indication: SCHIZOPHRENIA, PARANOID TYPE
     Dosage: 12.5 MG TWICE DAILY ORAL : 25 MG TWICE DAILY ORAL
     Route: 048
     Dates: start: 20111108, end: 20111125

REACTIONS (4)
  - CONVULSION [None]
  - SUTURE INSERTION [None]
  - RASH [None]
  - FALL [None]
